FAERS Safety Report 12287492 (Version 2)
Quarter: 2016Q2

REPORT INFORMATION
  Report Type: Spontaneous
  Country: US (occurrence: US)
  Receive Date: 20160420
  Receipt Date: 20160427
  Transmission Date: 20160815
  Serious: Yes (Other)
  Sender: FDA-Public Use
  Company Number: US-SA-2016SA075933

PATIENT
  Age: 65 Year
  Sex: Male

DRUGS (2)
  1. BCG FOR IMMUNOTHERAPY [Suspect]
     Active Substance: BACILLUS CALMETTE-GUERIN ANTIGEN, UNSPECIFIED SUBSTRAIN
     Indication: BLADDER CANCER
     Route: 065
  2. MITOMYCIN C [Concomitant]
     Active Substance: MITOMYCIN
     Route: 065

REACTIONS (7)
  - Osteomyelitis [Recovering/Resolving]
  - Groin pain [Recovering/Resolving]
  - Myositis [Recovering/Resolving]
  - Drug ineffective [Unknown]
  - Muscular weakness [Recovering/Resolving]
  - Transitional cell carcinoma [Unknown]
  - Pain in extremity [Recovering/Resolving]
